FAERS Safety Report 4822767-0 (Version None)
Quarter: 2005Q4

REPORT INFORMATION
  Report Type: 
  Country: None (occurrence: None)
  Receive Date: 20051107
  Receipt Date: 20051107
  Transmission Date: 20060501
  Serious: Yes (Death)
  Sender: FDA-Public Use
  Company Number: None

PATIENT
  Age: 81 Year
  Sex: Female

DRUGS (2)
  1. MORPHINE [Suspect]
     Dosage: 5 MG OTO IM
     Route: 030
  2. PROMETHAZINE [Suspect]
     Dosage: 25 MG  OTO  IM
     Route: 030

REACTIONS (10)
  - ANAEMIA [None]
  - BLOOD PRESSURE INCREASED [None]
  - CEREBELLAR INFARCTION [None]
  - CHEST PAIN [None]
  - CHEST X-RAY ABNORMAL [None]
  - DEPRESSED LEVEL OF CONSCIOUSNESS [None]
  - HYPERTENSION [None]
  - LOSS OF CONSCIOUSNESS [None]
  - PULMONARY CONGESTION [None]
  - RESPIRATORY DISTRESS [None]
